FAERS Safety Report 20520115 (Version 2)
Quarter: 2022Q1

REPORT INFORMATION
  Report Type: Spontaneous
  Country: MX (occurrence: MX)
  Receive Date: 20220225
  Receipt Date: 20220307
  Transmission Date: 20220424
  Serious: Yes (Other)
  Sender: FDA-Public Use
  Company Number: MX-SA-SAC20220209000648

PATIENT
  Age: 18 Year
  Sex: Male
  Weight: 18 kg

DRUGS (1)
  1. LARONIDASE [Suspect]
     Active Substance: LARONIDASE
     Indication: Mucopolysaccharidosis I
     Dosage: 500 U (4 VIALS), QOW
     Route: 041
     Dates: start: 2006

REACTIONS (2)
  - Seizure [Recovering/Resolving]
  - Influenza [Recovered/Resolved]

NARRATIVE: CASE EVENT DATE: 20100101
